FAERS Safety Report 13900627 (Version 1)
Quarter: 2017Q3

REPORT INFORMATION
  Report Type: Spontaneous
  Country: US (occurrence: US)
  Receive Date: 20170824
  Receipt Date: 20170824
  Transmission Date: 20171127
  Serious: Yes (Other)
  Sender: FDA-Public Use
  Company Number: PHHY2017US121768

PATIENT
  Age: 17 Month
  Sex: Male

DRUGS (10)
  1. DECITABINE. [Suspect]
     Active Substance: DECITABINE
     Indication: TRISOMY 21
  2. VORINOSTAT [Suspect]
     Active Substance: VORINOSTAT
     Indication: TRISOMY 21
  3. VORINOSTAT [Suspect]
     Active Substance: VORINOSTAT
     Indication: ACUTE MYELOID LEUKAEMIA
     Dosage: 180 MG/M2, UNK
     Route: 065
  4. CYTARABINE. [Suspect]
     Active Substance: CYTARABINE
     Indication: ACUTE MYELOID LEUKAEMIA
     Dosage: 2000 MG/M2, QD
     Route: 065
  5. CYTARABINE. [Suspect]
     Active Substance: CYTARABINE
     Indication: TRISOMY 21
  6. FLUDARABINE [Suspect]
     Active Substance: FLUDARABINE PHOSPHATE
     Indication: TRISOMY 21
     Dosage: 30 MG/M2, UNK
     Route: 065
  7. FLUDARABINE [Suspect]
     Active Substance: FLUDARABINE PHOSPHATE
     Indication: ACUTE MYELOID LEUKAEMIA
  8. DECITABINE. [Suspect]
     Active Substance: DECITABINE
     Indication: ACUTE MYELOID LEUKAEMIA
     Dosage: 7.5 MG/M2, UNK
     Route: 065
  9. FILGRASTIM [Suspect]
     Active Substance: FILGRASTIM
     Indication: ACUTE MYELOID LEUKAEMIA
     Dosage: 5 MU/KG/DOSE
     Route: 065
  10. FILGRASTIM [Suspect]
     Active Substance: FILGRASTIM
     Indication: TRISOMY 21

REACTIONS (6)
  - Disease progression [Unknown]
  - Anaemia [Not Recovered/Not Resolved]
  - Swelling face [Unknown]
  - Febrile neutropenia [Not Recovered/Not Resolved]
  - Disease recurrence [Unknown]
  - Nausea [Not Recovered/Not Resolved]
